FAERS Safety Report 8155873 (Version 3)
Quarter: 2017Q4

REPORT INFORMATION
  Report Type: Report from Study
  Country: CA (occurrence: CA)
  Receive Date: 20110926
  Receipt Date: 20171206
  Transmission Date: 20180321
  Serious: Yes (Hospitalization)
  Sender: FDA-Public Use
  Company Number: CA-UCBSA-034511

PATIENT
  Age: 68 Year
  Sex: Female
  Weight: 61.23 kg

DRUGS (14)
  1. CERTOLIZUMAB PEGOL RA [Suspect]
     Active Substance: CERTOLIZUMAB PEGOL
     Indication: RHEUMATOID ARTHRITIS
     Dosage: 200 MG, EV 2 WEEKS(QOW)
     Route: 058
     Dates: start: 2009
  2. CALCIUM/FOLIC ACID/VIT D [Concomitant]
     Indication: SUPPLEMENTATION THERAPY
  3. TYLENOL ARTHRITIS PAIN [Concomitant]
     Active Substance: ACETAMINOPHEN
     Indication: RHEUMATOID ARTHRITIS
  4. FOLIC ACID. [Concomitant]
     Active Substance: FOLIC ACID
     Indication: PRODUCT USED FOR UNKNOWN INDICATION
     Dosage: UNK
  5. CALCIUM/FOLIC ACID/VIT D [Concomitant]
     Indication: SUPPLEMENTATION THERAPY
  6. CALCIUM/FOLIC ACID/VIT D [Concomitant]
     Indication: SUPPLEMENTATION THERAPY
  7. VITAMIN D [Concomitant]
     Active Substance: CHOLECALCIFEROL
     Indication: PRODUCT USED FOR UNKNOWN INDICATION
  8. PREDNISONE. [Concomitant]
     Active Substance: PREDNISONE
     Indication: RHEUMATOID ARTHRITIS
     Dosage: 7.5 MG, ONCE DAILY (QD)
     Route: 048
     Dates: start: 2006
  9. TYLENOL ARTHRITIS PAIN [Concomitant]
     Active Substance: ACETAMINOPHEN
     Indication: PAIN
     Dosage: UNK UNK, AS NEEDED (PRN)
  10. CARBOCAL [Concomitant]
     Active Substance: CALCIUM CARBONATE
     Indication: PRODUCT USED FOR UNKNOWN INDICATION
  11. PANTOPRAZOLE [Concomitant]
     Active Substance: PANTOPRAZOLE
     Indication: PRODUCT USED FOR UNKNOWN INDICATION
  12. ACTONEL [Concomitant]
     Active Substance: RISEDRONATE SODIUM
     Indication: OSTEOPOROSIS
  13. METHOTREXATE. [Concomitant]
     Active Substance: METHOTREXATE
     Indication: RHEUMATOID ARTHRITIS
     Dosage: 20 MG, WEEKLY (QW)
     Route: 058
     Dates: start: 2007
  14. ACETAMINOPHEN. [Concomitant]
     Active Substance: ACETAMINOPHEN
     Indication: PRODUCT USED FOR UNKNOWN INDICATION

REACTIONS (15)
  - Muscle spasms [Not Recovered/Not Resolved]
  - Inappropriate schedule of drug administration [Unknown]
  - Decreased appetite [Recovered/Resolved]
  - Contusion [Unknown]
  - Swelling [Unknown]
  - Pain in extremity [Unknown]
  - Pneumonia [Unknown]
  - Pyrexia [Recovered/Resolved]
  - Muscle rupture [Not Recovered/Not Resolved]
  - Ecchymosis [Unknown]
  - Muscular weakness [Unknown]
  - Arthralgia [Unknown]
  - Epistaxis [Recovered/Resolved]
  - Headache [Unknown]
  - Urinary tract infection [Unknown]

NARRATIVE: CASE EVENT DATE: 201104
